FAERS Safety Report 11638210 (Version 1)
Quarter: 2015Q4

REPORT INFORMATION
  Report Type: Spontaneous
  Country: US (occurrence: US)
  Receive Date: 20151016
  Receipt Date: 20151016
  Transmission Date: 20160304
  Serious: No
  Sender: FDA-Public Use
  Company Number: US-INDIVIOR-RB-72223-2014

PATIENT

DRUGS (1)
  1. SUBOXONE [Suspect]
     Active Substance: BUPRENORPHINE HYDROCHLORIDE\NALOXONE HYDROCHLORIDE
     Indication: PRODUCT USED FOR UNKNOWN INDICATION
     Dosage: TWO 8 MG STRIPS A DAY
     Route: 065

REACTIONS (5)
  - Erythema [Unknown]
  - Skin irritation [Unknown]
  - Urticaria [Unknown]
  - Pruritus [Unknown]
  - Swelling [Unknown]
